FAERS Safety Report 7168100-3 (Version None)
Quarter: 2010Q4

REPORT INFORMATION
  Report Type: 
  Country: None (occurrence: None)
  Receive Date: 20101216
  Receipt Date: 20101208
  Transmission Date: 20110411
  Serious: Yes (Hospitalization, Other)
  Sender: FDA-Public Use
  Company Number: JP-PFIZER INC-2010142967

PATIENT
  Age: 59 Year
  Sex: Female
  Weight: 41 kg

DRUGS (23)
  1. GABAPENTIN [Suspect]
     Indication: PRURITUS
     Dosage: UNK
     Route: 048
     Dates: start: 20101020
  2. RHYTHMY [Concomitant]
     Dosage: 2 MG, 1X/DAY
  3. CLINORIL [Concomitant]
     Dosage: 100 MG, 3X/DAY
  4. MAINTATE [Concomitant]
     Dosage: 5 MG, 1X/DAY
  5. MEXITIL [Concomitant]
     Dosage: 50 MG, 3X/DAY
  6. ALDACTONE [Concomitant]
     Dosage: 25 MG, 1X/DAY
  7. LASIX [Concomitant]
     Dosage: 20 MG, 1X/DAY
  8. DIART [Concomitant]
     Dosage: 60 MG, 1X/DAY
  9. TRACLEER [Concomitant]
     Dosage: 62.5 MG, 2X/DAY
  10. BERAPROST SODIUM [Concomitant]
     Dosage: 120 UG, 2X/DAY
  11. REVATIO [Concomitant]
     Dosage: 20 MG, 3X/DAY
  12. BISOLVON [Concomitant]
     Dosage: 4 MG, 3X/DAY
  13. MUCOSOLVAN [Concomitant]
     Dosage: 15 MG, 3X/DAY
  14. BIOFERMIN R [Concomitant]
     Dosage: 1 G, 3X/DAY
  15. GASTER [Concomitant]
     Dosage: 20 MG, 1X/DAY
  16. MUCOSTA [Concomitant]
     Dosage: 100 MG, 2X/DAY
  17. NAUZELIN [Concomitant]
     Dosage: 10 MG, 3X/DAY
  18. PREDONINE [Concomitant]
     Dosage: 5 MG, 2X/DAY
  19. ONE-ALPHA [Concomitant]
     Dosage: 0.5 UG, 1X/DAY
  20. FLAVITAN [Concomitant]
     Dosage: 5 MG, 3X/DAY
  21. ALLOPURINOL [Concomitant]
     Dosage: 100 MG, 1X/DAY
  22. TYKERB [Concomitant]
     Dosage: 250 MG, 1X/DAY
     Dates: start: 20101122
  23. FENTANYL [Concomitant]
     Dosage: 4.2 MG, 1X/DAY

REACTIONS (1)
  - HEPATIC FUNCTION ABNORMAL [None]
